FAERS Safety Report 5381909-1 (Version None)
Quarter: 2007Q3

REPORT INFORMATION
  Report Type: 
  Country: None (occurrence: None)
  Receive Date: 20070709
  Receipt Date: 20070705
  Transmission Date: 20080115
  Serious: Yes (Death)
  Sender: FDA-Public Use
  Company Number: JP-ASTRAZENECA-2007AP02672

PATIENT
  Age: 26032 Day
  Sex: Female
  Weight: 46.1 kg

DRUGS (9)
  1. IRESSA [Suspect]
     Indication: LUNG SQUAMOUS CELL CARCINOMA STAGE IV
     Route: 048
     Dates: start: 20070417, end: 20070418
  2. CODEINE PHOSPHATE [Concomitant]
     Indication: COUGH
     Route: 048
     Dates: start: 20070309, end: 20070418
  3. MAGNESIUM OXIDE [Concomitant]
     Indication: CONSTIPATION
     Route: 048
     Dates: start: 20070309, end: 20070418
  4. AMLODIN OD [Concomitant]
     Indication: HYPERTENSION
     Route: 048
     Dates: start: 20070310, end: 20070418
  5. DEPAS [Concomitant]
     Indication: NEUROSIS
     Route: 048
     Dates: start: 20070324, end: 20070418
  6. LOXONIN [Concomitant]
     Indication: CANCER PAIN
     Route: 048
     Dates: start: 20070410, end: 20070418
  7. RADIOTHERAPY [Concomitant]
     Dosage: 24 GY RIGHT CORACOID PROCESS
     Dates: start: 20070319, end: 20070327
  8. RADIOTHERAPY [Concomitant]
     Dosage: 12 GY RIGHT HUMERUS
     Dates: start: 20070328, end: 20070329
  9. ZOMETA [Concomitant]
     Indication: METASTASES TO BONE
     Route: 041
     Dates: start: 20070316, end: 20070316

REACTIONS (2)
  - ACUTE ABDOMEN [None]
  - SHOCK [None]
